FAERS Safety Report 10015919 (Version 1)
Quarter: 2014Q1

REPORT INFORMATION
  Report Type: Spontaneous
  Country: US (occurrence: US)
  Receive Date: 20140317
  Receipt Date: 20140317
  Transmission Date: 20141002
  Serious: Yes (Other)
  Sender: FDA-Public Use
  Company Number: US-PFIZER INC-2014076354

PATIENT
  Age: 71 Year
  Sex: Female
  Weight: 59.86 kg

DRUGS (8)
  1. XELJANZ [Suspect]
     Indication: RHEUMATOID ARTHRITIS
     Dosage: 5 MG, 2X/DAY
     Route: 048
     Dates: start: 201312
  2. VITAMIN D [Concomitant]
     Dosage: UNK
  3. CALCIUM [Concomitant]
     Dosage: UNK
  4. METHOTREXATE [Concomitant]
     Dosage: UNK
  5. FOLIC ACID [Concomitant]
     Dosage: UNK
  6. BUPROPION HCL [Concomitant]
  7. ALPHAGAN [Concomitant]
  8. DULOXETINE [Concomitant]
     Dosage: UNK

REACTIONS (2)
  - Gait disturbance [Unknown]
  - Pelvic fracture [Unknown]
